FAERS Safety Report 9792035 (Version 1)
Quarter: 2014Q1

REPORT INFORMATION
  Report Type: Spontaneous
  Country: US (occurrence: US)
  Receive Date: 20140102
  Receipt Date: 20140102
  Transmission Date: 20141002
  Serious: No
  Sender: FDA-Public Use
  Company Number: US-009507513-1312USA008059

PATIENT
  Sex: Female
  Weight: 40.36 kg

DRUGS (1)
  1. IMPLANON [Suspect]
     Indication: CONTRACEPTION
     Dosage: THREE-YEAR DEVICE
     Route: 059
     Dates: start: 20101223

REACTIONS (5)
  - Unintended pregnancy [Unknown]
  - Swelling [Unknown]
  - Abdominal discomfort [Unknown]
  - Fatigue [Unknown]
  - Menstruation irregular [Unknown]
